FAERS Safety Report 4273840-X (Version None)
Quarter: 2004Q1

REPORT INFORMATION
  Report Type: 
  Country: None (occurrence: None)
  Receive Date: 20040115
  Receipt Date: 20031230
  Transmission Date: 20041129
  Serious: Yes (Death)
  Sender: FDA-Public Use
  Company Number: 180967

PATIENT
  Age: 60 Year
  Sex: Male

DRUGS (10)
  1. AVONEX [Suspect]
     Indication: MULTIPLE SCLEROSIS
     Dosage: 30 MCG QW IM
     Dates: start: 20020624, end: 20030801
  2. AVONEX [Suspect]
     Indication: MULTIPLE SCLEROSIS
     Dosage: 30 MCG QW IM
     Dates: start: 20030905, end: 20030912
  3. ASPIRIN [Concomitant]
  4. ATENOLOL [Concomitant]
  5. COLACE [Concomitant]
  6. FOLIC ACID [Concomitant]
  7. GLUCOVANCE [Concomitant]
  8. OXYBUTYNIN [Concomitant]
  9. PRAVACHOL [Concomitant]
  10. WELLBUTRIN [Concomitant]

REACTIONS (2)
  - MYOCARDIAL INFARCTION [None]
  - PULMONARY EMBOLISM [None]
